FAERS Safety Report 9432441 (Version 1)
Quarter: 2013Q3

REPORT INFORMATION
  Report Type: Spontaneous
  Country: US (occurrence: None)
  Receive Date: 20130730
  Receipt Date: 20130730
  Transmission Date: 20140515
  Serious: Yes (Life-Threatening, Hospitalization)
  Sender: FDA-Public Use
  Company Number: None

PATIENT
  Age: 54 None
  Sex: Female

DRUGS (13)
  1. AVELOX [Suspect]
     Indication: BACTERIAL INFECTION
     Dosage: 14 PILLS 1 TABLET DAILY MOUTH
     Route: 048
     Dates: start: 20130715, end: 20130715
  2. AVELOX [Suspect]
     Indication: GAIT DISTURBANCE
     Dosage: 14 PILLS 1 TABLET DAILY MOUTH
     Route: 048
     Dates: start: 20130715, end: 20130715
  3. DEPAKOTE [Concomitant]
  4. RANITIDINE [Concomitant]
  5. TRAZEDONE [Concomitant]
  6. CANE [Concomitant]
  7. ALBUTEROL [Concomitant]
  8. LIDOCAINE [Concomitant]
  9. HYDROCHORIDE [Concomitant]
  10. LYSINE [Concomitant]
  11. BLACK COHOSH [Concomitant]
  12. ACETOMINOPHEN [Concomitant]
  13. FISH OIL [Concomitant]

REACTIONS (15)
  - Disorientation [None]
  - Chills [None]
  - Hypoaesthesia [None]
  - Nausea [None]
  - Vomiting [None]
  - Headache [None]
  - Dizziness [None]
  - Abdominal pain [None]
  - Haematochezia [None]
  - Dehydration [None]
  - Paraesthesia [None]
  - Pyrexia [None]
  - Tremor [None]
  - Speech disorder [None]
  - White blood cell count increased [None]
